FAERS Safety Report 17397170 (Version 1)
Quarter: 2020Q1

REPORT INFORMATION
  Report Type: Spontaneous
  Country: US (occurrence: US)
  Receive Date: 20200207
  Receipt Date: 20200207
  Transmission Date: 20200409
  Serious: No
  Sender: FDA-Public Use
  Company Number: None

PATIENT
  Age: 31 Year
  Sex: Female
  Weight: 63 kg

DRUGS (2)
  1. EVENING PRIMROSE OIL 1300MG [Concomitant]
  2. DEPO-PROVERA [Suspect]
     Active Substance: MEDROXYPROGESTERONE ACETATE
     Indication: CONTRACEPTION
     Dosage: ?          OTHER FREQUENCY:JUST ONCE;OTHER ROUTE:INJECTION ON ARM?
     Dates: start: 20190913, end: 20190913

REACTIONS (8)
  - Vaginal haemorrhage [None]
  - Product complaint [None]
  - Metrorrhagia [None]
  - Menorrhagia [None]
  - Weight increased [None]
  - Loss of libido [None]
  - Vulvovaginal dryness [None]
  - Muscle spasms [None]
